FAERS Safety Report 9280218 (Version 1)
Quarter: 2013Q2

REPORT INFORMATION
  Report Type: Spontaneous
  Country: US (occurrence: None)
  Receive Date: 20130507
  Receipt Date: 20130507
  Transmission Date: 20140414
  Serious: Yes (Other)
  Sender: FDA-Public Use
  Company Number: None

PATIENT
  Age: 33 Year
  Sex: Female
  Weight: 73.03 kg

DRUGS (1)
  1. MIRENA IUD [Suspect]

REACTIONS (2)
  - Alopecia [None]
  - Suppressed lactation [None]
